FAERS Safety Report 10144161 (Version 3)
Quarter: 2014Q2

REPORT INFORMATION
  Report Type: Report from Study
  Country: GB (occurrence: GB)
  Receive Date: 20140430
  Receipt Date: 20140613
  Transmission Date: 20141212
  Serious: Yes (Life-Threatening, Hospitalization)
  Sender: FDA-Public Use
  Company Number: GB-PFIZER INC-2014109097

PATIENT
  Age: 46 Year
  Sex: Male
  Weight: 90.5 kg

DRUGS (1)
  1. AXITINIB [Suspect]
     Indication: METASTATIC RENAL CELL CARCINOMA
     Dosage: 10 MG, 2X/DAY
     Dates: start: 20130531

REACTIONS (1)
  - Thrombocytopenia [Recovered/Resolved]
